FAERS Safety Report 18969099 (Version 1)
Quarter: 2021Q1

REPORT INFORMATION
  Report Type: Spontaneous
  Country: BR (occurrence: BR)
  Receive Date: 20210304
  Receipt Date: 20210304
  Transmission Date: 20210420
  Serious: Yes (Other)
  Sender: FDA-Public Use
  Company Number: BR-PFIZER INC-2011005770

PATIENT
  Age: 48 Year
  Sex: Female

DRUGS (5)
  1. STILL [Concomitant]
     Dosage: RIGHT EYE ONLY
  2. PILOCARPINE. [Concomitant]
     Active Substance: PILOCARPINE
     Dosage: RIGHT EYE ONLY
  3. XALATAN [Suspect]
     Active Substance: LATANOPROST
     Indication: GLAUCOMA
     Dosage: 1 DROP, 2X/DAY RIGHT EYE
     Dates: start: 20100110
  4. BRIMONIDINE TARTRATE. [Concomitant]
     Active Substance: BRIMONIDINE TARTRATE
     Dosage: RIGHT EYE ONLY
  5. TIMOLOL MALEATE. [Concomitant]
     Active Substance: TIMOLOL MALEATE
     Dosage: RIGHT EYE ONLY

REACTIONS (2)
  - Optic nerve injury [Unknown]
  - Off label use [Unknown]

NARRATIVE: CASE EVENT DATE: 20100110
